FAERS Safety Report 4972197-6 (Version None)
Quarter: 2006Q2

REPORT INFORMATION
  Report Type: 
  Country: None (occurrence: None)
  Receive Date: 20060413
  Receipt Date: 20060217
  Transmission Date: 20061013
  Serious: Yes (Hospitalization)
  Sender: FDA-Public Use
  Company Number: FR-GLAXOSMITHKLINE-B0412739A

PATIENT
  Age: 63 Year
  Sex: Female
  Weight: 71 kg

DRUGS (1)
  1. LAMICTAL [Suspect]
     Route: 048
     Dates: start: 20060202, end: 20060217

REACTIONS (12)
  - APLASTIC ANAEMIA [None]
  - DRUG ADMINISTRATION ERROR [None]
  - ERYTHEMA [None]
  - HEPATOCELLULAR DAMAGE [None]
  - HYPERSENSITIVITY [None]
  - HYPONATRAEMIA [None]
  - LEUKOCYTURIA [None]
  - LEUKOPENIA [None]
  - PANCYTOPENIA [None]
  - PYREXIA [None]
  - RASH MACULO-PAPULAR [None]
  - THROMBOCYTOPENIA [None]
